FAERS Safety Report 18117859 (Version 1)
Quarter: 2020Q3

REPORT INFORMATION
  Report Type: Spontaneous
  Country: US (occurrence: US)
  Receive Date: 20200805
  Receipt Date: 20200805
  Transmission Date: 20201103
  Serious: Yes (Death)
  Sender: FDA-Public Use
  Company Number: None

PATIENT
  Age: 71 Year
  Sex: Male
  Weight: 117.4 kg

DRUGS (22)
  1. REMDESIVIR. [Suspect]
     Active Substance: REMDESIVIR
     Indication: COVID-19
     Dosage: ?          OTHER FREQUENCY:ONCE;?
     Route: 040
     Dates: start: 20200719, end: 20200719
  2. DEXAMETHASONE. [Concomitant]
     Active Substance: DEXAMETHASONE
     Dates: start: 20200719, end: 20200727
  3. FAMOTIDINE. [Concomitant]
     Active Substance: FAMOTIDINE
     Dates: start: 20200718, end: 20200728
  4. METRONIDAZOLE. [Concomitant]
     Active Substance: METRONIDAZOLE
     Dates: start: 20200718, end: 20200720
  5. PROPOFOL. [Concomitant]
     Active Substance: PROPOFOL
     Dates: start: 20200718, end: 20200731
  6. CHLORHEXIDINE TOPICAL [Concomitant]
     Dates: start: 20200718, end: 20200724
  7. GALATMAINE [Concomitant]
     Dates: start: 20200718, end: 20200731
  8. INSULIN LISPRO [Concomitant]
     Active Substance: INSULIN LISPRO
     Dates: start: 20200718, end: 20200730
  9. LORATADINE. [Concomitant]
     Active Substance: LORATADINE
     Dates: start: 20200718, end: 20200731
  10. ASPRIN [Concomitant]
     Active Substance: ASPIRIN
     Dates: start: 20200720, end: 20200723
  11. CEFEPIME [Concomitant]
     Active Substance: CEFEPIME HYDROCHLORIDE
     Dates: start: 20200718, end: 20200722
  12. HEPARIN [Concomitant]
     Active Substance: HEPARIN SODIUM
     Dates: start: 20200717, end: 20200730
  13. LACTULOSE. [Concomitant]
     Active Substance: LACTULOSE
     Dates: start: 20200718, end: 20200731
  14. ALBUMIN [Concomitant]
     Active Substance: ALBUMIN HUMAN
     Dates: start: 20200719, end: 20200719
  15. DOCUSATE [Concomitant]
     Active Substance: DOCUSATE
     Dates: start: 20200718, end: 20200731
  16. MUPIROCIN. [Concomitant]
     Active Substance: MUPIROCIN
     Dates: start: 20200718, end: 20200723
  17. ATORVASTATIN [Concomitant]
     Active Substance: ATORVASTATIN
     Dates: start: 20200721, end: 20200731
  18. AZITHROMYCIN ANHYDROUS. [Concomitant]
     Active Substance: AZITHROMYCIN ANHYDROUS
     Dates: start: 20200718, end: 20200721
  19. FENTANYL. [Concomitant]
     Active Substance: FENTANYL
     Dates: start: 20200718, end: 20200730
  20. REMDESIVIR. [Suspect]
     Active Substance: REMDESIVIR
     Indication: COVID-19
     Route: 041
     Dates: start: 20200720, end: 20200723
  21. VANCOMYCIN [Concomitant]
     Active Substance: VANCOMYCIN
     Dates: start: 20200718, end: 20200723
  22. MIDAZOLAM. [Concomitant]
     Active Substance: MIDAZOLAM
     Dates: start: 20200718, end: 20200731

REACTIONS (1)
  - Death [None]

NARRATIVE: CASE EVENT DATE: 20200731
